FAERS Safety Report 14339620 (Version 7)
Quarter: 2019Q1

REPORT INFORMATION
  Report Type: Spontaneous
  Country: FR (occurrence: FR)
  Receive Date: 20171230
  Receipt Date: 20190116
  Transmission Date: 20190417
  Serious: Yes (Hospitalization, Other)
  Sender: FDA-Public Use
  Company Number: FR-AUROBINDO-AUR-APL-2017-48146

PATIENT
  Age: 85 Year
  Sex: Female
  Weight: 68 kg

DRUGS (14)
  1. TRAMADOL+PARACETAMOL FILM-COATED ARROW TABLET [Suspect]
     Active Substance: ACETAMINOPHEN\TRAMADOL
     Indication: ARTHRALGIA
     Dosage: UNK
     Route: 065
  2. ALDACTAZINE [Concomitant]
     Active Substance: ALTHIAZIDE\SPIRONOLACTONE
     Indication: HYPERTENSION
     Dosage: 1 DF, QD
     Route: 048
     Dates: start: 2016
  3. ASPIRINE [Concomitant]
     Active Substance: ASPIRIN
     Indication: POSTOPERATIVE CARE
     Dosage: UNK
     Route: 065
  4. VALSARTAN AND HYDROCHLOROTHIAZIDE [Concomitant]
     Active Substance: HYDROCHLOROTHIAZIDE\VALSARTAN
     Indication: HYPERTENSION
     Dosage: UNK
     Route: 065
  5. NEBIVOLOL TABLET QUADRISEC [Suspect]
     Active Substance: NEBIVOLOL
     Indication: HYPERTENSION
     Dosage: UNK
     Route: 065
  6. ALDACTAZINE [Concomitant]
     Active Substance: ALTHIAZIDE\SPIRONOLACTONE
     Indication: HYPERTENSION
  7. PERINDOPRIL ARGININE BIOGARAN [Suspect]
     Active Substance: PERINDOPRIL ARGININE
     Indication: HYPERTENSION
     Dosage: UNK UNK, 1/DAY
     Route: 048
     Dates: start: 2017
  8. NISISCO [Concomitant]
     Active Substance: HYDROCHLOROTHIAZIDE\VALSARTAN
     Indication: HYPERTENSION
     Dosage: UNK
     Route: 065
  9. PERINDOPRIL [Suspect]
     Active Substance: PERINDOPRIL
     Indication: HYPERTENSION
     Dosage: UNK UNK, 1/DAY
     Route: 048
     Dates: start: 2017
  10. RILMENIDINE [Suspect]
     Active Substance: RILMENIDINE
     Indication: HYPERTENSION
     Dosage: UNK
     Route: 065
  11. SPIRONOLACTONE FILM-COATED TABLET [Suspect]
     Active Substance: SPIRONOLACTONE
     Indication: HYPERTENSION
     Dosage: DAILY,  IN THE MORNING
     Route: 065
     Dates: start: 2016
  12. ASPIRINE [Concomitant]
     Active Substance: ASPIRIN
     Indication: STENT PLACEMENT
  13. PERINDOPRIL ARGININE BIOGARAN [Suspect]
     Active Substance: PERINDOPRIL ARGININE
     Dosage: 5 MILLIGRAM, DAILY
     Route: 048
     Dates: start: 2016
  14. ALTIZIDE W/SPIRONOLACTONE [Concomitant]
     Active Substance: ALTHIAZIDE\SPIRONOLACTONE
     Indication: HYPERTENSION
     Dosage: UNK
     Route: 065

REACTIONS (21)
  - Nausea [Unknown]
  - Wrong schedule [Unknown]
  - Cough [Not Recovered/Not Resolved]
  - Labelled drug-drug interaction medication error [Unknown]
  - Medication error [Unknown]
  - Product use issue [Not Recovered/Not Resolved]
  - Acute kidney injury [Unknown]
  - Vasculitis [Unknown]
  - Diarrhoea [Unknown]
  - Arthralgia [Unknown]
  - Urine output increased [Not Recovered/Not Resolved]
  - Asthma [Unknown]
  - Palpitations [Unknown]
  - Dyspnoea [Unknown]
  - Respiratory disorder [Unknown]
  - Abdominal pain [Unknown]
  - Tachycardia [Unknown]
  - Fatigue [Unknown]
  - Myalgia [Not Recovered/Not Resolved]
  - Feeling hot [Unknown]
  - Drug ineffective [Unknown]

NARRATIVE: CASE EVENT DATE: 2016
